FAERS Safety Report 7910495-4 (Version None)
Quarter: 2011Q4

REPORT INFORMATION
  Report Type: 
  Country: None (occurrence: None)
  Receive Date: 20111111
  Receipt Date: 20111102
  Transmission Date: 20120403
  Serious: Yes (Hospitalization)
  Sender: FDA-Public Use
  Company Number: PHHO2011IT018512

PATIENT
  Sex: Male
  Weight: 135 kg

DRUGS (10)
  1. METOPROLOL TARTRATE [Concomitant]
     Dosage: 25 MG, UNK
     Dates: start: 20110427
  2. IRBESARTAN + HYDROCHLOROTHIAZIDE [Suspect]
     Dosage: 300/25
     Dates: start: 20091117
  3. BLINDED NO TREATMENT RECEIVED [Suspect]
     Indication: CORONARY ARTERY DISEASE
     Dosage: CODE NOT BROKEN
     Route: 048
     Dates: start: 20100317
  4. BLINDED PLACEBO [Suspect]
     Indication: CORONARY ARTERY DISEASE
     Dosage: CODE NOT BROKEN
     Route: 048
     Dates: start: 20100317
  5. ALISKIREN [Suspect]
     Indication: CORONARY ARTERY DISEASE
     Dosage: 150 MG, UNK
     Dates: start: 20100311, end: 20100317
  6. DIURESIX [Concomitant]
     Dosage: 10 MG, UNK
     Dates: start: 20091117
  7. CARDURA [Concomitant]
     Dosage: 4 MG, UNK
     Dates: start: 20100414
  8. BLINDED ALISKIREN [Suspect]
     Indication: CORONARY ARTERY DISEASE
     Dosage: CODE NOT BROKEN
     Route: 048
     Dates: start: 20100317
  9. ALLOPURINOL [Concomitant]
     Dosage: 300 MG, UNK
     Dates: start: 20110527
  10. SPIRONOLACTONE [Suspect]
     Dosage: 25 MG, UNK
     Dates: start: 20110427

REACTIONS (2)
  - DIARRHOEA [None]
  - RENAL FAILURE [None]
